FAERS Safety Report 15066640 (Version 1)
Quarter: 2018Q2

REPORT INFORMATION
  Report Type: Spontaneous
  Country: IT (occurrence: IT)
  Receive Date: 20180626
  Receipt Date: 20180626
  Transmission Date: 20180711
  Serious: Yes (Hospitalization)
  Sender: FDA-Public Use
  Company Number: PHHY2018IT029823

PATIENT
  Age: 79 Year
  Sex: Male

DRUGS (1)
  1. AMOXICILLIN+CLAVULANIC ACID [Suspect]
     Active Substance: AMOXICILLIN\CLAVULANIC ACID
     Indication: RESPIRATORY TRACT INFECTION
     Dosage: 3 G, QD
     Route: 048
     Dates: start: 20180320, end: 20180322

REACTIONS (2)
  - Erythrodermic psoriasis [Unknown]
  - Bronchospasm [Unknown]

NARRATIVE: CASE EVENT DATE: 20180324
